FAERS Safety Report 9793356 (Version 3)
Quarter: 2014Q1

REPORT INFORMATION
  Report Type: Spontaneous
  Country: IT (occurrence: IT)
  Receive Date: 20140102
  Receipt Date: 20140226
  Transmission Date: 20141002
  Serious: Yes (Other)
  Sender: FDA-Public Use
  Company Number: IT-PFIZER INC-2013374370

PATIENT
  Age: 30 Year
  Sex: Female
  Weight: 60 kg

DRUGS (10)
  1. LYRICA [Suspect]
     Indication: QUADRIPARESIS
     Dosage: 50 MG, DAILY
     Route: 048
  2. LYRICA [Suspect]
     Dosage: 100 MG, DAILY
     Route: 048
     Dates: start: 20130314, end: 20130715
  3. LYRICA [Suspect]
     Dosage: UNK
     Dates: end: 20130729
  4. CALCIUM CARBONATE/COLECALCIFEROL [Concomitant]
     Dosage: 1 DF, UNK
     Route: 048
  5. KEPPRA [Concomitant]
     Indication: EPILEPSY
     Dosage: 10 ML, UNK
     Route: 048
  6. LIORESAL [Concomitant]
     Dosage: 50 MG, UNK
     Route: 048
  7. NEXIUM [Concomitant]
     Dosage: 40 MG, UNK
     Route: 048
  8. GAVISCON [Concomitant]
     Dosage: 20 ML, UNK
     Route: 048
  9. DIBASE [Concomitant]
     Dosage: 1 DF, UNK
  10. CETIRIZINE [Concomitant]
     Dosage: 10 MG, UNK

REACTIONS (3)
  - Thrombocytopenia [Unknown]
  - Bradykinesia [Unknown]
  - Bradyphrenia [Unknown]
